FAERS Safety Report 6770472-6 (Version None)
Quarter: 2010Q2

REPORT INFORMATION
  Report Type: 
  Country: None (occurrence: None)
  Receive Date: 20100615
  Receipt Date: 20100603
  Transmission Date: 20101027
  Serious: Yes (Hospitalization)
  Sender: FDA-Public Use
  Company Number: US-PFIZER INC-2010069056

PATIENT
  Sex: Female

DRUGS (1)
  1. REVATIO [Suspect]
     Indication: PULMONARY HYPERTENSION
     Dosage: UNK

REACTIONS (4)
  - CONDITION AGGRAVATED [None]
  - DRUG DOSE OMISSION [None]
  - ECONOMIC PROBLEM [None]
  - PULMONARY HYPERTENSION [None]
